FAERS Safety Report 8349360-X (Version None)
Quarter: 2012Q2

REPORT INFORMATION
  Report Type: 
  Country: None (occurrence: None)
  Receive Date: 20120510
  Receipt Date: 20120504
  Transmission Date: 20120825
  Serious: Yes (Other)
  Sender: FDA-Public Use
  Company Number: PHHY2012IT038585

PATIENT
  Sex: Female

DRUGS (5)
  1. TASIGNA [Suspect]
     Dosage: 600 MG,
     Dates: start: 20120301
  2. RIZEN [Concomitant]
  3. DOMINANS [Concomitant]
  4. COMPENDIUM [Concomitant]
  5. LANSOPRAZOLE [Concomitant]

REACTIONS (1)
  - ELECTROCARDIOGRAM QT PROLONGED [None]
